FAERS Safety Report 15738205 (Version 3)
Quarter: 2019Q1

REPORT INFORMATION
  Report Type: Spontaneous
  Country: IN (occurrence: IN)
  Receive Date: 20181219
  Receipt Date: 20190315
  Transmission Date: 20190417
  Serious: Yes (Hospitalization, Other)
  Sender: FDA-Public Use
  Company Number: IN-LUPIN PHARMACEUTICALS INC.-2018-08716

PATIENT
  Age: 75 Year
  Sex: Female

DRUGS (9)
  1. TRAMADOL. [Suspect]
     Active Substance: TRAMADOL
     Dosage: UNK MG, QD (100 MG TABLET)
     Route: 048
  2. TRAMADOL HYDROCHLORIDE. [Suspect]
     Active Substance: TRAMADOL HYDROCHLORIDE
     Indication: PAIN
     Dosage: 100 ML, QD (O.D-IV IN 100 ML NS SOLUTION)
     Route: 042
  3. EMSET [Concomitant]
     Indication: PAIN
     Dosage: 4 MG, QD
     Route: 042
  4. TRAMADOL. [Suspect]
     Active Substance: TRAMADOL
     Dosage: UNK MG, QD (50 MG TABLET)
     Route: 048
  5. SODIUM CHLORIDE. [Concomitant]
     Active Substance: SODIUM CHLORIDE
     Indication: PRODUCT USED FOR UNKNOWN INDICATION
     Dosage: 100 MILLILITER, QD
     Route: 042
  6. DEXPANTHENOL. [Concomitant]
     Active Substance: DEXPANTHENOL
     Indication: PRODUCT USED FOR UNKNOWN INDICATION
     Dosage: UNK UNK, QD
     Route: 042
  7. TRAMADOL. [Suspect]
     Active Substance: TRAMADOL
     Indication: CHEST PAIN
     Dosage: 50 MG, UNK
     Route: 048
  8. RABEPRAZOLE [Concomitant]
     Active Substance: RABEPRAZOLE
     Indication: PAIN
     Dosage: 20 MG, BID
     Route: 042
  9. OPTINEURON                         /00322001/ [Concomitant]
     Indication: PAIN
     Dosage: UNK UNK, QD (1 AMP. 3 ML IN 100 ML OF NS)
     Route: 042

REACTIONS (1)
  - Parkinsonism [Recovered/Resolved]
